FAERS Safety Report 24532760 (Version 6)
Quarter: 2025Q1

REPORT INFORMATION
  Report Type: Spontaneous
  Country: PL (occurrence: PL)
  Receive Date: 20241022
  Receipt Date: 20250215
  Transmission Date: 20250409
  Serious: Yes (Hospitalization)
  Sender: ABBVIE
  Company Number: PL-ROCHE-10000105669

PATIENT
  Age: 71 Year
  Sex: Male
  Weight: 59 kg

DRUGS (14)
  1. VENCLEXTA [Suspect]
     Active Substance: VENETOCLAX
     Indication: Chronic lymphocytic leukaemia
     Dosage: PATIENT RECEIVED THE SUBSEQUENT DOSE OF VENCLEXTA 26/SEP/2024 AND 01/OCT/2024
     Route: 048
     Dates: start: 20230509, end: 20240926
  2. ACURENAL [Concomitant]
     Indication: Hypertension
     Route: 065
     Dates: start: 2015
  3. BISEPTOL [Concomitant]
     Active Substance: SULFAMETHOXAZOLE\TRIMETHOPRIM
     Indication: Product used for unknown indication
     Route: 065
     Dates: start: 20230509
  4. CEFTRIAXONE [Concomitant]
     Active Substance: CEFTRIAXONE
     Indication: Product used for unknown indication
     Route: 065
  5. PIRTOBRUTINIB [Suspect]
     Active Substance: PIRTOBRUTINIB
     Indication: Chronic lymphocytic leukaemia
     Dosage: FREQUENCY: DAILY PATIENT RECEIVED THE SUBSEQUENT DOSE OF PIRTOBRUTINIB 26/SEP/2024 AND 01/OCT/2024
     Route: 048
     Dates: start: 20230509, end: 20240926
  6. HEVIRAN COMFORT [Concomitant]
     Indication: Product used for unknown indication
     Dates: start: 2012
  7. HEVIRAN COMFORT [Concomitant]
     Indication: Product used for unknown indication
     Dates: start: 20200715
  8. RITUXIMAB [Suspect]
     Active Substance: RITUXIMAB
     Indication: Chronic lymphocytic leukaemia
     Route: 042
     Dates: start: 20230509, end: 20230926
  9. NORFLOXACIN [Concomitant]
     Active Substance: NORFLOXACIN
     Indication: Urinary tract infection
     Route: 065
     Dates: start: 20240827
  10. ACARD [Concomitant]
     Indication: Product used for unknown indication
     Route: 065
     Dates: start: 20200715
  11. GENTAMICIN [Concomitant]
     Active Substance: GENTAMICIN
     Indication: Product used for unknown indication
     Route: 065
  12. SORBIFER DURULES [Concomitant]
     Indication: Product used for unknown indication
     Route: 065
     Dates: start: 20231219
  13. PREDNISONE [Concomitant]
     Active Substance: PREDNISONE
     Indication: Chronic lymphocytic leukaemia
  14. IBRUTINIB [Concomitant]
     Active Substance: IBRUTINIB
     Indication: Chronic lymphocytic leukaemia

REACTIONS (1)
  - Squamous cell carcinoma of lung [Recovered/Resolved]

NARRATIVE: CASE EVENT DATE: 20240926
